FAERS Safety Report 20646123 (Version 1)
Quarter: 2022Q1

REPORT INFORMATION
  Report Type: Report from Study
  Country: US (occurrence: US)
  Receive Date: 20220329
  Receipt Date: 20220329
  Transmission Date: 20220423
  Serious: Yes (Other)
  Sender: FDA-Public Use
  Company Number: US-BRISTOL-MYERS SQUIBB COMPANY-2022-011573

PATIENT
  Age: 56 Year
  Sex: Female
  Weight: 56.7 kg

DRUGS (8)
  1. REVLIMID [Suspect]
     Active Substance: LENALIDOMIDE
     Indication: Plasma cell myeloma
     Dosage: 1 CAPSULE 21/BTL(1 CAPSULE PER EVERY OTHER DAY FOR 21 DAYS AND THEN TAKE  7 DAYS OFF
     Route: 048
  2. ACYCLOVIR [Concomitant]
     Active Substance: ACYCLOVIR
  3. AMLODIPINE BESYLATE [Concomitant]
     Active Substance: AMLODIPINE BESYLATE
  4. DEXAMETHASONE [Concomitant]
     Active Substance: DEXAMETHASONE
  5. DONEPEZIL [Concomitant]
     Active Substance: DONEPEZIL
  6. Asprine [Concomitant]
     Dosage: LOW DOSE
  7. PREDNISONE [Concomitant]
     Active Substance: PREDNISONE
  8. VELCADE [Concomitant]
     Active Substance: BORTEZOMIB

REACTIONS (4)
  - Diarrhoea [Unknown]
  - Muscle spasms [Unknown]
  - Dementia [Unknown]
  - Renal disorder [Unknown]
